FAERS Safety Report 4665030-3 (Version None)
Quarter: 2005Q2

REPORT INFORMATION
  Report Type: 
  Country: None (occurrence: None)
  Receive Date: 20050517
  Receipt Date: 20050428
  Transmission Date: 20051028
  Serious: Yes (Hospitalization)
  Sender: FDA-Public Use
  Company Number: CA_050408005

PATIENT
  Age: 37 Year
  Sex: Female
  Weight: 52 kg

DRUGS (9)
  1. FORTEO [Suspect]
     Indication: OSTEOPOROSIS
     Dosage: 20 UG/1 DAY
     Dates: start: 20050207
  2. PREDNISONE [Concomitant]
  3. ZOLOFT [Concomitant]
  4. CALCIUM GLUCONATE [Concomitant]
  5. VITAMIN D [Concomitant]
  6. BIAXIN [Concomitant]
  7. XANAX (ALPRAZOLAM DUM) [Concomitant]
  8. DILAUDID [Concomitant]
  9. FLEXERIL [Concomitant]

REACTIONS (6)
  - ASTHMA [None]
  - CONDITION AGGRAVATED [None]
  - DIABETES MELLITUS [None]
  - FATIGUE [None]
  - HYPERSOMNIA [None]
  - INJECTION SITE ERYTHEMA [None]
